FAERS Safety Report 9156262 (Version 1)
Quarter: 2013Q1

REPORT INFORMATION
  Report Type: Spontaneous
  Country: US (occurrence: US)
  Receive Date: 20130111
  Receipt Date: 20130111
  Transmission Date: 20140127
  Serious: Yes (Hospitalization, Other)
  Sender: FDA-Public Use
  Company Number: US-RB-048400-13

PATIENT
  Age: 43 Year
  Sex: Male

DRUGS (2)
  1. SUBOXONE TABLET [Suspect]
     Route: 060
     Dates: start: 2006
  2. SUBOXONE TABLET [Suspect]
     Indication: DRUG DEPENDENCE
     Dosage: VARIED DOSES
     Route: 060
     Dates: end: 201209

REACTIONS (7)
  - Underdose [Recovered/Resolved]
  - Wrong technique in drug usage process [Recovered/Resolved]
  - Fall [Recovered/Resolved]
  - Subdural haematoma [Recovered/Resolved]
  - Amnesia [Not Recovered/Not Resolved]
  - Vision blurred [Unknown]
  - Disorientation [Unknown]
